FAERS Safety Report 4941332-8 (Version None)
Quarter: 2006Q1

REPORT INFORMATION
  Report Type: 
  Country: None (occurrence: None)
  Receive Date: 20060310
  Receipt Date: 20060310
  Transmission Date: 20060701
  Serious: Yes (Life-Threatening)
  Sender: FDA-Public Use
  Company Number: None

PATIENT
  Age: 36 Year
  Sex: Female
  Weight: 68.0396 kg

DRUGS (5)
  1. FLUOXETINE [Suspect]
     Dosage: 20 MG
     Dates: start: 20060307
  2. LAMICTAL [Concomitant]
  3. LEXAPRO [Concomitant]
  4. EFFEXOR XR [Concomitant]
  5. XANAX [Concomitant]

REACTIONS (2)
  - DYSPNOEA [None]
  - THROAT TIGHTNESS [None]
